FAERS Safety Report 6737573-X (Version None)
Quarter: 2010Q2

REPORT INFORMATION
  Report Type: 
  Country: None (occurrence: None)
  Receive Date: 20100519
  Receipt Date: 20100506
  Transmission Date: 20101027
  Serious: Yes (Other)
  Sender: FDA-Public Use
  Company Number: DSA_43068_2010

PATIENT
  Sex: Female

DRUGS (5)
  1. BUPROPION HCL [Suspect]
     Indication: DEPRESSION
     Dosage: (150 MG DAILY ORAL)
     Route: 048
     Dates: start: 20091113, end: 20091123
  2. VALDOXAN [Concomitant]
  3. TAVOR /00273201/ [Concomitant]
  4. PREGABALIN [Concomitant]
  5. FUMADERM [Concomitant]

REACTIONS (3)
  - FEELING HOT [None]
  - MENTAL DISORDER [None]
  - PSORIASIS [None]
